FAERS Safety Report 9206984 (Version 1)
Quarter: 2013Q2

REPORT INFORMATION
  Report Type: Spontaneous
  Country: US (occurrence: US)
  Receive Date: 20130403
  Receipt Date: 20130403
  Transmission Date: 20140414
  Serious: No
  Sender: FDA-Public Use
  Company Number: US-BAYER-2013-041269

PATIENT
  Age: 58 Year
  Sex: Female
  Weight: 115.19 kg

DRUGS (1)
  1. ALEVE CAPLET [Suspect]
     Indication: ARTHRITIS
     Dosage: 2 DF, UNK
     Route: 048
     Dates: start: 2008

REACTIONS (3)
  - Product taste abnormal [Recovered/Resolved]
  - Incorrect drug administration duration [Recovered/Resolved]
  - Eructation [Recovered/Resolved]
